FAERS Safety Report 10421242 (Version 2)
Quarter: 2014Q4

REPORT INFORMATION
  Report Type: Spontaneous
  Country: US (occurrence: US)
  Receive Date: 20140830
  Receipt Date: 20141014
  Transmission Date: 20150528
  Serious: No
  Sender: FDA-Public Use
  Company Number: US-009507513-1408USA015115

PATIENT
  Sex: Female
  Weight: 160.1 kg

DRUGS (2)
  1. GLYBURIDE. [Concomitant]
     Active Substance: GLYBURIDE
     Indication: GESTATIONAL DIABETES
     Dosage: 2.5 MG, HS
     Route: 048
     Dates: start: 20140224, end: 20140407
  2. NEXPLANON [Suspect]
     Active Substance: ETONOGESTREL
     Indication: CONTRACEPTION
     Dosage: 68 MG/ ONE ROD
     Route: 058
     Dates: start: 20130722

REACTIONS (2)
  - Unintended pregnancy [Recovered/Resolved]
  - Device difficult to use [Not Recovered/Not Resolved]
